FAERS Safety Report 6355095-5 (Version None)
Quarter: 2009Q3

REPORT INFORMATION
  Report Type: 
  Country: None (occurrence: None)
  Receive Date: 20090914
  Receipt Date: 20090909
  Transmission Date: 20100115
  Serious: Yes (Death, Other)
  Sender: FDA-Public Use
  Company Number: US-SANOFI-SYNTHELABO-F01200900661

PATIENT
  Sex: Male

DRUGS (3)
  1. CAPECITABINE [Suspect]
     Indication: COLORECTAL CANCER
     Route: 048
     Dates: start: 20090414, end: 20090528
  2. OXALIPLATIN [Suspect]
     Indication: COLORECTAL CANCER
     Dosage: UNK
     Route: 042
     Dates: start: 20090604, end: 20090604
  3. OXALIPLATIN [Suspect]
     Dosage: UNK
     Route: 042
     Dates: start: 20090604, end: 20090604

REACTIONS (2)
  - DYSURIA [None]
  - MALIGNANT NEOPLASM PROGRESSION [None]
